FAERS Safety Report 17477730 (Version 1)
Quarter: 2020Q1

REPORT INFORMATION
  Report Type: Spontaneous
  Country: US (occurrence: US)
  Receive Date: 20200229
  Receipt Date: 20200229
  Transmission Date: 20200409
  Serious: Yes (Hospitalization, Other)
  Sender: FDA-Public Use
  Company Number: US-AUROBINDO-AUR-APL-2020-009953

PATIENT
  Age: 69 Year
  Sex: Male

DRUGS (1)
  1. BUPIVACAINE HYDROCHLORIDE. [Suspect]
     Active Substance: BUPIVACAINE HYDROCHLORIDE
     Indication: POSTOPERATIVE ANALGESIA
     Dosage: UNK (BUPIVACAINE VIA PATIENT-CONTROLLED ANALGESIA (PCA) POST-OPERATIVELY)
     Route: 065

REACTIONS (2)
  - Drug-induced liver injury [Recovered/Resolved]
  - Hepatitis acute [Recovered/Resolved]
